FAERS Safety Report 9835913 (Version 2)
Quarter: 2014Q2

REPORT INFORMATION
  Report Type: Spontaneous
  Country: GB (occurrence: GB)
  Receive Date: 20140122
  Receipt Date: 20140516
  Transmission Date: 20141212
  Serious: Yes (Other)
  Sender: FDA-Public Use
  Company Number: PHHY2014GB002400

PATIENT
  Age: 84 Year
  Sex: Female
  Weight: 50 kg

DRUGS (3)
  1. SALBUTAMOL [Suspect]
     Indication: DIAGNOSTIC PROCEDURE
     Dosage: 4 DF, UNK
     Route: 055
     Dates: start: 20131224, end: 20131224
  2. SERETIDE [Concomitant]
  3. SYMBICORT [Concomitant]

REACTIONS (2)
  - Dyspnoea [Recovered/Resolved]
  - Stridor [Recovered/Resolved]
